FAERS Safety Report 11099276 (Version 3)
Quarter: 2015Q3

REPORT INFORMATION
  Report Type: Spontaneous
  Country: US (occurrence: US)
  Receive Date: 20150508
  Receipt Date: 20150903
  Transmission Date: 20151125
  Serious: Yes (Hospitalization, Other)
  Sender: FDA-Public Use
  Company Number: US-TEVA-560766ACC

PATIENT
  Age: 36 Year
  Sex: Female

DRUGS (1)
  1. PARAGARD T 380A [Suspect]
     Active Substance: COPPER
     Indication: CONTRACEPTION
     Route: 015
     Dates: start: 20150227

REACTIONS (4)
  - Amenorrhoea [Unknown]
  - Device expulsion [Unknown]
  - Abortion spontaneous [Recovered/Resolved with Sequelae]
  - Pregnancy on contraceptive [Unknown]

NARRATIVE: CASE EVENT DATE: 201503
